FAERS Safety Report 9285706 (Version 3)
Quarter: 2013Q3

REPORT INFORMATION
  Report Type: Spontaneous
  Country: US (occurrence: US)
  Receive Date: 20130513
  Receipt Date: 20130704
  Transmission Date: 20140515
  Serious: No
  Sender: FDA-Public Use
  Company Number: US-PFIZER INC-2013144780

PATIENT
  Age: 61 Year
  Sex: Male

DRUGS (6)
  1. SUTENT [Suspect]
     Indication: PHAEOCHROMOCYTOMA
     Dosage: 25 MG, 1X/DAY
     Route: 048
     Dates: start: 20120802, end: 20130522
  2. LEVOTHYROXINE [Concomitant]
     Dosage: 112 UG, UNK
  3. HYDRALAZINE [Concomitant]
     Dosage: 10 MG, UNK
  4. COLACE [Concomitant]
     Dosage: 100 MG, UNK
  5. LABETALOL [Concomitant]
     Dosage: 200 MG, UNK
  6. CARDURA [Concomitant]
     Dosage: 8 MG, UNK

REACTIONS (4)
  - Malaise [Unknown]
  - Off label use [Unknown]
  - Disease progression [Unknown]
  - Phaeochromocytoma [Unknown]
